FAERS Safety Report 9698503 (Version 1)
Quarter: 2013Q4

REPORT INFORMATION
  Report Type: Spontaneous
  Country: US (occurrence: None)
  Receive Date: 20131101
  Receipt Date: 20131101
  Transmission Date: 20140711
  Serious: Yes (Hospitalization, Other)
  Sender: FDA-Public Use
  Company Number: 2013038644

PATIENT
  Age: 44 Year
  Sex: Female

DRUGS (2)
  1. CARIMUNE [Suspect]
     Indication: MULTIPLE SCLEROSIS
     Dosage: 60 G TOTAL
     Dates: start: 20130626
  2. TECFIDERA [Suspect]
     Indication: MULTIPLE SCLEROSIS
     Dates: start: 20130713

REACTIONS (8)
  - Nausea [None]
  - Vomiting [None]
  - Dehydration [None]
  - Cardiac arrest [None]
  - Bradycardia [None]
  - Aspiration [None]
  - Chest pain [None]
  - Stress cardiomyopathy [None]
